FAERS Safety Report 22289300 (Version 3)
Quarter: 2023Q2

REPORT INFORMATION
  Report Type: Spontaneous
  Country: US (occurrence: US)
  Receive Date: 20230505
  Receipt Date: 20230517
  Transmission Date: 20230722
  Serious: Yes (Hospitalization, Disabling)
  Sender: FDA-Public Use
  Company Number: US-Merz Pharmaceuticals GmbH-23-01271

PATIENT
  Age: 70 Year
  Sex: Female
  Weight: 68.5 kg

DRUGS (5)
  1. XEOMIN [Suspect]
     Active Substance: INCOBOTULINUMTOXINA
     Indication: Skin cosmetic procedure
     Dates: start: 202303, end: 202303
  2. XEOMIN [Suspect]
     Active Substance: INCOBOTULINUMTOXINA
     Indication: Skin cosmetic procedure
  3. BOTOX [Concomitant]
     Active Substance: ONABOTULINUMTOXINA
     Indication: Skin cosmetic procedure
  4. DYSPORT [BOTULINUM TOXIN TYPE A] [Concomitant]
  5. JEUVEAU [Concomitant]
     Active Substance: PRABOTULINUMTOXINA-XVFS
     Indication: Skin cosmetic procedure

REACTIONS (12)
  - Gait disturbance [Unknown]
  - Memory impairment [Unknown]
  - Fatigue [Unknown]
  - Autoimmune disorder [Unknown]
  - Dizziness [Not Recovered/Not Resolved]
  - Vision blurred [Not Recovered/Not Resolved]
  - Headache [Not Recovered/Not Resolved]
  - Facial asymmetry [Unknown]
  - Eyelid ptosis [Unknown]
  - Muscular weakness [Unknown]
  - Dyspnoea [Not Recovered/Not Resolved]
  - Off label use [Unknown]

NARRATIVE: CASE EVENT DATE: 20230101
